FAERS Safety Report 5953364-1 (Version None)
Quarter: 2008Q4

REPORT INFORMATION
  Report Type: 
  Country: None (occurrence: None)
  Receive Date: 20081031
  Receipt Date: 20080411
  Transmission Date: 20090506
  Serious: Yes (Other)
  Sender: FDA-Public Use
  Company Number: US-WYE-H03567408

PATIENT
  Age: 74 Year
  Sex: Female
  Weight: 59.02 kg

DRUGS (4)
  1. PREMARIN [Suspect]
     Indication: VULVOVAGINAL DRYNESS
     Dosage: 1 GRAM BIWEEKLY, VAGINAL
     Route: 067
     Dates: start: 20061101, end: 20080401
  2. LOPRESSOR [Concomitant]
  3. CALCIUM (CALCIUM) [Concomitant]
  4. MULTIVITAMINS, PLAIN (MULTIVITAMINS, PLAIN) [Concomitant]

REACTIONS (2)
  - FOOD INTERACTION [None]
  - POSTMENOPAUSAL HAEMORRHAGE [None]
